FAERS Safety Report 24453668 (Version 2)
Quarter: 2024Q4

REPORT INFORMATION
  Report Type: Report from Study
  Country: US (occurrence: US)
  Receive Date: 20241017
  Receipt Date: 20241018
  Transmission Date: 20250115
  Serious: No
  Sender: ROCHE
  Company Number: US-ROCHE-3268627

PATIENT
  Age: 66 Year
  Sex: Female

DRUGS (5)
  1. RITUXAN [Suspect]
     Active Substance: RITUXIMAB
     Indication: Granulomatosis with polyangiitis
     Dosage: INFUSE 500MG INTRAVENOUSLY EVERY 4-6 MONTH(S)?DATE OF SERVICE: 14/NOV/2022
     Route: 041
     Dates: start: 20221114
  2. RITUXAN [Suspect]
     Active Substance: RITUXIMAB
     Route: 041
     Dates: start: 20230116, end: 20240116
  3. DULOXETINE [Concomitant]
     Active Substance: DULOXETINE
  4. TYLENOL [Concomitant]
     Active Substance: ACETAMINOPHEN
  5. AZATHIOPRINE [Concomitant]
     Active Substance: AZATHIOPRINE

REACTIONS (2)
  - Off label use [Unknown]
  - No adverse event [Unknown]
